FAERS Safety Report 12363896 (Version 1)
Quarter: 2016Q2

REPORT INFORMATION
  Report Type: Spontaneous
  Country: US (occurrence: US)
  Receive Date: 20160512
  Receipt Date: 20160512
  Transmission Date: 20160815
  Serious: No
  Sender: FDA-Public Use
  Company Number: US-UCBSA-2015022045

PATIENT
  Age: 32 Year
  Sex: Female

DRUGS (4)
  1. PHENERGAN [Concomitant]
     Active Substance: PROMETHAZINE HYDROCHLORIDE
     Indication: NAUSEA
     Dosage: UNK, AS NEEDED (PRN)
  2. FLEXERIL [Concomitant]
     Active Substance: CYCLOBENZAPRINE HYDROCHLORIDE
     Indication: HEADACHE
     Dosage: UNK, AS NEEDED (PRN)
  3. CIMZIA [Suspect]
     Active Substance: CERTOLIZUMAB PEGOL
     Indication: CROHN^S DISEASE
     Dosage: 400 MG, EV 4 WEEKS
     Dates: start: 201408
  4. PRENATAL VITAMINS [Concomitant]
     Active Substance: VITAMINS
     Indication: PREGNANCY
     Dosage: UNK, ONCE DAILY (QD)
     Route: 048
     Dates: start: 201505

REACTIONS (10)
  - Fatigue [Recovered/Resolved]
  - Crohn^s disease [Recovered/Resolved]
  - Pregnancy [Unknown]
  - Heart rate irregular [Not Recovered/Not Resolved]
  - Arthralgia [Recovered/Resolved]
  - Abdominal distension [Recovered/Resolved]
  - Dyspnoea [Not Recovered/Not Resolved]
  - Palpitations [Not Recovered/Not Resolved]
  - Nausea [Not Recovered/Not Resolved]
  - Inappropriate schedule of drug administration [Unknown]

NARRATIVE: CASE EVENT DATE: 2015
